FAERS Safety Report 9344804 (Version 2)
Quarter: 2013Q3

REPORT INFORMATION
  Report Type: Spontaneous
  Country: PT (occurrence: PT)
  Receive Date: 20130612
  Receipt Date: 20130905
  Transmission Date: 20140515
  Serious: Yes (Other)
  Sender: FDA-Public Use
  Company Number: PT-BRISTOL-MYERS SQUIBB COMPANY-18994129

PATIENT
  Age: 38 Year
  Sex: Female

DRUGS (4)
  1. STOCRIN TABS [Suspect]
     Indication: HIV INFECTION
     Route: 065
     Dates: start: 2011
  2. ATAZANAVIR [Suspect]
     Indication: HIV INFECTION
  3. TRUVADA [Concomitant]
     Indication: HIV INFECTION
  4. ZIDOVUDINE [Concomitant]
     Indication: HIV INFECTION

REACTIONS (5)
  - Premature delivery [Unknown]
  - Viral load increased [Not Recovered/Not Resolved]
  - Twin pregnancy [Recovered/Resolved]
  - Inappropriate schedule of drug administration [Unknown]
  - Dizziness [Unknown]
